APPROVED DRUG PRODUCT: PRASUGREL
Active Ingredient: PRASUGREL HYDROCHLORIDE
Strength: EQ 10MG BASE
Dosage Form/Route: TABLET;ORAL
Application: A205790 | Product #002
Applicant: CHARTWELL RX SCIENCES LLC
Approved: Oct 16, 2017 | RLD: No | RS: No | Type: DISCN